FAERS Safety Report 10442174 (Version 1)
Quarter: 2014Q2

REPORT INFORMATION
  Report Type: Spontaneous
  Country: US (occurrence: None)
  Receive Date: 20140618
  Receipt Date: 20140618
  Transmission Date: 20141212
  Serious: Yes (Hospitalization)
  Sender: FDA-Public Use
  Company Number: 110660

PATIENT
  Sex: Female
  Weight: 70.3 kg

DRUGS (5)
  1. LACOSAMIDE [Suspect]
     Indication: PARTIAL SEIZURES
     Dosage: 200 MG EVERY DAY AND 400 MG EVERY NIGHT AT BEDTIME
     Dates: start: 201401
  2. KEPPRA [Suspect]
     Indication: PARTIAL SEIZURES
  3. DAILY VITAMINS [Concomitant]
  4. CLOBAZAM [Concomitant]
  5. TRILEPTAL [Concomitant]

REACTIONS (4)
  - Brain operation [None]
  - Inappropriate schedule of drug administration [None]
  - Overdose [None]
  - Drug ineffective [None]
